FAERS Safety Report 12750834 (Version 1)
Quarter: 2016Q3

REPORT INFORMATION
  Report Type: Spontaneous
  Country: AU (occurrence: AU)
  Receive Date: 20160916
  Receipt Date: 20160916
  Transmission Date: 20161109
  Serious: Yes (Other)
  Sender: FDA-Public Use
  Company Number: AU-ASTELLAS-2016US035268

PATIENT
  Age: 46 Year
  Sex: Male

DRUGS (3)
  1. AMBISOME [Suspect]
     Active Substance: AMPHOTERICIN B
     Indication: FUSARIUM INFECTION
     Dosage: 0.01MG IN 1 ML, UNKNOWN FREQ. (INTRACAMERAL)
     Route: 050
  2. AMBISOME [Suspect]
     Active Substance: AMPHOTERICIN B
     Dosage: 0.05 MG IN 0.1 ML, UNKNOWN FREQ. (INTRASTROMAL)
     Route: 050
  3. AMBISOME [Suspect]
     Active Substance: AMPHOTERICIN B
     Dosage: 0.01.MG IN 0.1 ML, UNKNOWN FREQ. (INTRAVITREAL)
     Route: 050

REACTIONS (2)
  - Drug ineffective [Not Recovered/Not Resolved]
  - Off label use [Unknown]
